FAERS Safety Report 19926768 (Version 3)
Quarter: 2021Q4

REPORT INFORMATION
  Report Type: Report from Study
  Country: IT (occurrence: IT)
  Receive Date: 20211007
  Receipt Date: 20211111
  Transmission Date: 20220303
  Serious: Yes (Hospitalization)
  Sender: FDA-Public Use
  Company Number: None

PATIENT
  Age: 75 Year
  Sex: Female

DRUGS (3)
  1. PANTOPRAZOLE [Suspect]
     Active Substance: PANTOPRAZOLE
     Dosage: 1120 MG , ADDITIONAL INFO : ABUSE / MISUSE
     Dates: start: 20210720, end: 20210720
  2. OLMESARTAN MEDOXOMIL [Suspect]
     Active Substance: OLMESARTAN MEDOXOMIL
     Dosage: 280 MG , ADDITIONAL INFO : ABUSE / MISUSE
     Dates: start: 20210720, end: 20210720
  3. TEGRETOL [Suspect]
     Active Substance: CARBAMAZEPINE
     Dosage: 8000 MG , ADDITIONAL INFO : ABUSE / MISUSE
     Dates: start: 20210720, end: 20210720

REACTIONS (2)
  - Hypotension [Unknown]
  - Drug abuse [Unknown]

NARRATIVE: CASE EVENT DATE: 20210720
